FAERS Safety Report 15788325 (Version 3)
Quarter: 2019Q1

REPORT INFORMATION
  Report Type: Spontaneous
  Country: US (occurrence: US)
  Receive Date: 20190104
  Receipt Date: 20190321
  Transmission Date: 20190417
  Serious: No
  Sender: FDA-Public Use
  Company Number: US-SHIRE-US201900069

PATIENT
  Age: 15 Year
  Sex: Male

DRUGS (1)
  1. ELAPRASE [Suspect]
     Active Substance: IDURSULFASE
     Indication: MUCOPOLYSACCHARIDOSIS II
     Dosage: 24 MG, 1X/WEEK
     Route: 042
     Dates: start: 20100402

REACTIONS (2)
  - Device issue [Unknown]
  - Swelling [Unknown]

NARRATIVE: CASE EVENT DATE: 20190101
